FAERS Safety Report 9359114 (Version 3)
Quarter: 2013Q3

REPORT INFORMATION
  Report Type: Report from Study
  Country: GB (occurrence: CN)
  Receive Date: 20130620
  Receipt Date: 20130703
  Transmission Date: 20140515
  Serious: Yes (Life-Threatening, Hospitalization, Other)
  Sender: FDA-Public Use
  Company Number: CN-FRI-1000046049

PATIENT
  Age: 66 Year
  Sex: Female
  Weight: 50 kg

DRUGS (1)
  1. CEFTAROLINE FOSAMIL [Suspect]
     Indication: SOFT TISSUE INFECTION
     Dosage: 600 MG,120-MIN. IV INF. EVERY 8 HRS. EACH DOSE WILL BE INF. IN A VOLUME OF 250 ML OVER 120 MINUTES
     Route: 042
     Dates: start: 20130606, end: 20130615

REACTIONS (2)
  - Hypokalaemia [Recovering/Resolving]
  - Exposure via ingestion [Recovering/Resolving]
